FAERS Safety Report 5376880-2 (Version None)
Quarter: 2007Q3

REPORT INFORMATION
  Report Type: 
  Country: None (occurrence: None)
  Receive Date: 20070703
  Receipt Date: 20070620
  Transmission Date: 20080115
  Serious: Yes (Hospitalization)
  Sender: FDA-Public Use
  Company Number: FR-ELI_LILLY_AND_COMPANY-FR200706004695

PATIENT
  Age: 52 Year
  Sex: Female

DRUGS (3)
  1. FORTEO [Suspect]
     Indication: OSTEOPOROSIS
     Dosage: 20 UG, DAILY (1/D)
     Route: 058
     Dates: start: 20061124
  2. CORTISONE ACETATE [Concomitant]
     Indication: HAEMOSIDEROSIS
     Dosage: 4 D/F, DAILY (1/D)
     Route: 048
  3. CORTISONE ACETATE [Concomitant]
     Dosage: 3 G, OTHER
     Route: 040

REACTIONS (6)
  - COGNITIVE DISORDER [None]
  - FATIGUE [None]
  - HAEMOSIDEROSIS [None]
  - HEARING IMPAIRED [None]
  - MOTOR DYSFUNCTION [None]
  - VISUAL ACUITY REDUCED [None]
